FAERS Safety Report 7305395-7 (Version None)
Quarter: 2011Q1

REPORT INFORMATION
  Report Type: 
  Country: None (occurrence: None)
  Receive Date: 20110222
  Receipt Date: 20110217
  Transmission Date: 20110831
  Serious: Yes (Death, Hospitalization, Other)
  Sender: FDA-Public Use
  Company Number: PHHY2010CA79237

PATIENT
  Sex: Female
  Weight: 40.363 kg

DRUGS (1)
  1. SANDOSTATIN LAR [Suspect]
     Indication: OVARIAN NEOPLASM
     Dosage: 20 MG, QMO
     Route: 030
     Dates: start: 20101112, end: 20101209

REACTIONS (7)
  - MALAISE [None]
  - BLOOD POTASSIUM DECREASED [None]
  - BLOOD MAGNESIUM DECREASED [None]
  - ASTHENIA [None]
  - PALLIATIVE CARE [None]
  - INJECTION SITE PAIN [None]
  - RED BLOOD CELL COUNT DECREASED [None]
